FAERS Safety Report 22223973 (Version 3)
Quarter: 2023Q2

REPORT INFORMATION
  Report Type: Spontaneous
  Country: JP (occurrence: JP)
  Receive Date: 20230418
  Receipt Date: 20230518
  Transmission Date: 20230722
  Serious: Yes (Hospitalization, Other)
  Sender: FDA-Public Use
  Company Number: JP-PFIZER INC-PV202300068754

PATIENT
  Age: 8 Decade
  Sex: Male

DRUGS (3)
  1. DIFLUCAN [Suspect]
     Active Substance: FLUCONAZOLE
     Indication: Product used for unknown indication
     Dosage: UNK
  2. BLINCYTO [Suspect]
     Active Substance: BLINATUMOMAB
     Indication: Acute lymphocytic leukaemia
     Dosage: UNK, CYCLIC
     Route: 042
     Dates: start: 20230213
  3. PREDNISOLONE [Concomitant]
     Active Substance: PREDNISOLONE
     Dosage: UNK (5-10 MG)

REACTIONS (9)
  - Cytokine release syndrome [Recovered/Resolved]
  - Cognitive disorder [Not Recovered/Not Resolved]
  - Glaucoma [Not Recovered/Not Resolved]
  - Open angle glaucoma [Unknown]
  - Acute lymphocytic leukaemia [Unknown]
  - Lacrimal gland enlargement [Not Recovered/Not Resolved]
  - Eosinophil count increased [Recovered/Resolved]
  - Rash [Unknown]
  - Reduced facial expression [Unknown]

NARRATIVE: CASE EVENT DATE: 20230214
